FAERS Safety Report 4294942-8 (Version None)
Quarter: 2004Q1

REPORT INFORMATION
  Report Type: 
  Country: None (occurrence: None)
  Receive Date: 20040216
  Receipt Date: 20030310
  Transmission Date: 20041129
  Serious: No
  Sender: FDA-Public Use
  Company Number: US-GLAXOSMITHKLINE-A0399643A

PATIENT
  Age: 41 Year
  Sex: Male

DRUGS (3)
  1. LAMICTAL [Suspect]
     Dosage: 25MG PER DAY
     Route: 048
     Dates: start: 20030221
  2. SEROQUEL [Concomitant]
  3. MULTIVITAMIN [Concomitant]

REACTIONS (3)
  - CHEST PAIN [None]
  - DIARRHOEA [None]
  - MEMORY IMPAIRMENT [None]
